FAERS Safety Report 10537527 (Version 1)
Quarter: 2014Q4

REPORT INFORMATION
  Report Type: Spontaneous
  Country: US (occurrence: None)
  Receive Date: 20141021
  Receipt Date: 20141021
  Transmission Date: 20150529
  Serious: Yes (Other)
  Sender: FDA-Public Use
  Company Number: 1937531-2014-00011

PATIENT

DRUGS (1)
  1. BACTOSHIELD CHG [Suspect]
     Active Substance: CHLORHEXIDINE GLUCONATE

REACTIONS (2)
  - Wrong drug administered [None]
  - Accidental exposure to product [None]

NARRATIVE: CASE EVENT DATE: 20140930
